FAERS Safety Report 25806087 (Version 3)
Quarter: 2025Q4

REPORT INFORMATION
  Report Type: Report from Study
  Country: US (occurrence: US)
  Receive Date: 20250916
  Receipt Date: 20251006
  Transmission Date: 20260118
  Serious: Yes (Death)
  Sender: ROCHE
  Company Number: US-ROCHE-10000388393

PATIENT
  Age: 82 Year
  Sex: Male

DRUGS (12)
  1. VABYSMO [Suspect]
     Active Substance: FARICIMAB-SVOA
     Indication: Type 2 diabetes mellitus
     Dosage: INJECT 6MG INTO THE LEFT EYE VIA INTRAVITREAL ADMINISTRATION EVERY 5 WEEK(S)
     Route: 050
     Dates: start: 20250316
  2. VABYSMO [Suspect]
     Active Substance: FARICIMAB-SVOA
     Indication: Diabetic retinopathy
  3. VABYSMO [Suspect]
     Active Substance: FARICIMAB-SVOA
     Indication: Macular oedema
  4. VABYSMO [Suspect]
     Active Substance: FARICIMAB-SVOA
  5. ATORVASTATIN [Concomitant]
     Active Substance: ATORVASTATIN
  6. GLIPIZIDE [Concomitant]
     Active Substance: GLIPIZIDE
  7. ELIQUIS [Concomitant]
     Active Substance: APIXABAN
  8. LISINOPRIL [Concomitant]
     Active Substance: LISINOPRIL
  9. MECLIZINE [Concomitant]
     Active Substance: MECLIZINE HYDROCHLORIDE
  10. FUROSEMIDE [Concomitant]
     Active Substance: FUROSEMIDE
  11. METFORMIN [Concomitant]
     Active Substance: METFORMIN HYDROCHLORIDE
  12. METOPROLOL [Concomitant]
     Active Substance: METOPROLOL

REACTIONS (2)
  - Death [Fatal]
  - Off label use [Unknown]
